FAERS Safety Report 6016254-4 (Version None)
Quarter: 2008Q4

REPORT INFORMATION
  Report Type: 
  Country: None (occurrence: None)
  Receive Date: 20081222
  Receipt Date: 20081216
  Transmission Date: 20090506
  Serious: Yes (Hospitalization, Other)
  Sender: FDA-Public Use
  Company Number: JP-ELI_LILLY_AND_COMPANY-JP200812000002

PATIENT
  Sex: Female
  Weight: 42.2 kg

DRUGS (5)
  1. GEMCITABINE HCL [Suspect]
     Indication: PANCREATIC CARCINOMA NON-RESECTABLE
     Dosage: 1000 MG/M2, OTHER
     Route: 042
     Dates: start: 20080618, end: 20081105
  2. LOXOPROFEN [Concomitant]
     Indication: CANCER PAIN
     Dosage: 60 MG, AS NEEDED
     Route: 048
  3. RABEPRAZOLE SODIUM [Concomitant]
     Indication: PROPHYLAXIS
     Dosage: 10 MG, AS NEEDED
     Route: 048
  4. DEXART [Concomitant]
     Indication: PROPHYLAXIS OF NAUSEA AND VOMITING
     Dosage: 4 MG, UNKNOWN
     Route: 042
     Dates: start: 20081105, end: 20081105
  5. GRANISETRON [Concomitant]
     Indication: PROPHYLAXIS OF NAUSEA AND VOMITING
     Dosage: 3 MG, UNKNOWN
     Route: 042
     Dates: start: 20081105, end: 20081105

REACTIONS (2)
  - INAPPROPRIATE ANTIDIURETIC HORMONE SECRETION [None]
  - MALIGNANT NEOPLASM PROGRESSION [None]
